FAERS Safety Report 16967719 (Version 1)
Quarter: 2019Q4

REPORT INFORMATION
  Report Type: Report from Study
  Country: CA (occurrence: CA)
  Receive Date: 20191028
  Receipt Date: 20191028
  Transmission Date: 20200122
  Serious: Yes (Other)
  Sender: FDA-Public Use
  Company Number: PHHY2019CA212292

PATIENT
  Sex: Female

DRUGS (4)
  1. KISQALI [Suspect]
     Active Substance: RIBOCICLIB
     Indication: BREAST CANCER METASTATIC
     Dosage: 200 MG, QD (2 TABS DAILY FOR 21 DAYS THEN OFF FOR 7 DAYS IN A 28 DAY CYCLE )
     Route: 048
     Dates: start: 20181221
  2. ANASTROZOLE. [Suspect]
     Active Substance: ANASTROZOLE
     Indication: PRODUCT USED FOR UNKNOWN INDICATION
     Dosage: 1 MG, QD
     Route: 048
  3. ZOMETA [Suspect]
     Active Substance: ZOLEDRONIC ACID
     Indication: BREAST CANCER
  4. ZOMETA [Suspect]
     Active Substance: ZOLEDRONIC ACID
     Indication: METASTASES TO BONE
     Dosage: 4 MG, UNK (EVERY 12 WEEKS)
     Route: 065
     Dates: start: 2019

REACTIONS (4)
  - White blood cell count abnormal [Unknown]
  - Liver injury [Unknown]
  - Bone disorder [Unknown]
  - Malaise [Unknown]
